FAERS Safety Report 8235292-4 (Version None)
Quarter: 2012Q1

REPORT INFORMATION
  Report Type: 
  Country: None (occurrence: None)
  Receive Date: 20120326
  Receipt Date: 20120320
  Transmission Date: 20120608
  Serious: No
  Sender: FDA-Public Use
  Company Number: US-PFIZER INC-2012073762

PATIENT
  Sex: Male
  Weight: 79.365 kg

DRUGS (4)
  1. WARFARIN [Concomitant]
     Indication: HEART RATE INCREASED
  2. LIPITOR [Suspect]
     Indication: BLOOD CHOLESTEROL INCREASED
     Dosage: 20 MG, 1X/DAY
     Route: 048
  3. LIPITOR [Suspect]
     Dosage: 40 MG TABLET; HALF TABLET DAILY
  4. WARFARIN [Concomitant]
     Indication: ANTICOAGULANT THERAPY
     Dosage: UNK

REACTIONS (1)
  - DYSPEPSIA [None]
